FAERS Safety Report 25918977 (Version 1)
Quarter: 2025Q4

REPORT INFORMATION
  Report Type: Spontaneous
  Country: US (occurrence: None)
  Receive Date: 20251010
  Receipt Date: 20251010
  Transmission Date: 20260117
  Serious: Yes (Hospitalization)
  Sender: FDA-CTU
  Company Number: None

PATIENT
  Age: 67 Year
  Sex: Female

DRUGS (11)
  1. TOBRAMYCIN [Suspect]
     Active Substance: TOBRAMYCIN
     Indication: Respiratory tract infection
     Dosage: FREQUENCY : TWICE A DAY;?
     Route: 055
     Dates: start: 20250815
  2. MIRTAZAPINE [Concomitant]
     Active Substance: MIRTAZAPINE
  3. CLONAZEPAM [Concomitant]
     Active Substance: CLONAZEPAM
  4. OMEPRAZOLE [Concomitant]
     Active Substance: OMEPRAZOLE
  5. VITAMIN D3 [Concomitant]
     Active Substance: CHOLECALCIFEROL
  6. ALENDRONATE [Concomitant]
     Active Substance: ALENDRONATE SODIUM
  7. ALBUTEROL [Concomitant]
     Active Substance: ALBUTEROL
  8. ITRACONAZOLE [Concomitant]
     Active Substance: ITRACONAZOLE
  9. AZITHROMYCIN [Concomitant]
     Active Substance: AZITHROMYCIN
  10. ACETAMINOPHEN [Concomitant]
     Active Substance: ACETAMINOPHEN
  11. TACROLIMUS [Concomitant]
     Active Substance: TACROLIMUS

REACTIONS (2)
  - Myocardial infarction [None]
  - Dialysis [None]
